FAERS Safety Report 14940076 (Version 1)
Quarter: 2018Q2

REPORT INFORMATION
  Report Type: Spontaneous
  Country: PT (occurrence: PT)
  Receive Date: 20180525
  Receipt Date: 20180525
  Transmission Date: 20180711
  Serious: Yes (Other)
  Sender: FDA-Public Use
  Company Number: PT-ANIPHARMA-2018-PT-000026

PATIENT
  Age: 56 Year
  Sex: Male

DRUGS (5)
  1. ZOLEDRONIC ACID [Suspect]
     Active Substance: ZOLEDRONIC ACID
     Route: 065
     Dates: start: 201310
  2. BICALUTAMIDE. [Suspect]
     Active Substance: BICALUTAMIDE
     Indication: PROSTATE CANCER
     Route: 048
     Dates: start: 201310
  3. JEVTANA [Suspect]
     Active Substance: CABAZITAXEL
     Dosage: UNK / 21 CYCLES OF CHEMOTHERAPY
     Route: 051
  4. ENZALUTAMIDE [Suspect]
     Active Substance: ENZALUTAMIDE
     Route: 065
  5. DOCETAXEL. [Suspect]
     Active Substance: DOCETAXEL
     Dosage: UNK / 7 CYCLES OF CHEMOTHERAPY
     Route: 065

REACTIONS (5)
  - Bone lesion [Unknown]
  - Condition aggravated [Not Recovered/Not Resolved]
  - Bone pain [Unknown]
  - Bone disorder [Not Recovered/Not Resolved]
  - Malignant neoplasm progression [Unknown]

NARRATIVE: CASE EVENT DATE: 201504
